FAERS Safety Report 10622168 (Version 2)
Quarter: 2014Q4

REPORT INFORMATION
  Report Type: Spontaneous
  Country: JP (occurrence: JP)
  Receive Date: 20141203
  Receipt Date: 20141217
  Transmission Date: 20150529
  Serious: Yes (Hospitalization, Other)
  Sender: FDA-Public Use
  Company Number: PHHY2014JP155586

PATIENT
  Sex: Female

DRUGS (1)
  1. DICLOFENAC [Suspect]
     Active Substance: DICLOFENAC
     Indication: PRODUCT USED FOR UNKNOWN INDICATION
     Route: 048

REACTIONS (13)
  - Pallor [Recovered/Resolved]
  - Face oedema [Recovered/Resolved]
  - Pulse abnormal [Recovered/Resolved]
  - Incontinence [Recovered/Resolved]
  - Altered state of consciousness [Recovered/Resolved]
  - Respiration abnormal [Recovered/Resolved]
  - Wheezing [Recovered/Resolved]
  - Hyperhidrosis [Recovered/Resolved]
  - Blood pressure decreased [Recovered/Resolved]
  - Anaphylactic reaction [Recovered/Resolved]
  - Discomfort [Recovered/Resolved]
  - Hypopnoea [Recovered/Resolved]
  - Hypoaesthesia [Recovered/Resolved]
